FAERS Safety Report 10990458 (Version 2)
Quarter: 2015Q4

REPORT INFORMATION
  Report Type: Spontaneous
  Country: JP (occurrence: JP)
  Receive Date: 20150406
  Receipt Date: 20151102
  Transmission Date: 20160304
  Serious: Yes (Other)
  Sender: FDA-Public Use
  Company Number: JP-PFIZER INC-2015113275

PATIENT
  Age: 3 Decade
  Sex: Female

DRUGS (1)
  1. AMPICILLIN SODIUM W/SULBACTAM SODIUM [Suspect]
     Active Substance: AMPICILLIN SODIUM\SULBACTAM SODIUM
     Dosage: UNK
     Route: 048

REACTIONS (1)
  - Enterocolitis haemorrhagic [Recovered/Resolved]
